FAERS Safety Report 8990416 (Version 2)
Quarter: 2013Q4

REPORT INFORMATION
  Report Type: Spontaneous
  Country: US (occurrence: US)
  Receive Date: 20121228
  Receipt Date: 20131018
  Transmission Date: 20140711
  Serious: Yes (Hospitalization)
  Sender: FDA-Public Use
  Company Number: US-BAYER-2012-134444

PATIENT
  Age: 29 Year
  Sex: Female
  Weight: 72.56 kg

DRUGS (2)
  1. MIRENA [Suspect]
     Indication: CONTRACEPTION
     Dosage: 20 MCG/24HR, CONT
     Route: 015
     Dates: start: 20091201, end: 20120131
  2. ZANTAC [Concomitant]
     Route: 048

REACTIONS (9)
  - Uterine perforation [None]
  - Gastrointestinal pain [None]
  - Medical device discomfort [None]
  - Uterine spasm [None]
  - Uterine pain [None]
  - Medical device pain [None]
  - Injury [None]
  - Infection [None]
  - Device issue [None]
